FAERS Safety Report 19667233 (Version 2)
Quarter: 2021Q3

REPORT INFORMATION
  Report Type: Spontaneous
  Country: US (occurrence: US)
  Receive Date: 20210806
  Receipt Date: 20210823
  Transmission Date: 20211014
  Serious: Yes (Other)
  Sender: FDA-Public Use
  Company Number: US-009507513-2108USA000219

PATIENT
  Age: 62 Year
  Sex: Male

DRUGS (17)
  1. ATENOLOL. [Concomitant]
     Active Substance: ATENOLOL
     Dosage: 0.5 TABLET, ONCE DAILY
     Route: 048
  2. BACLOFEN. [Concomitant]
     Active Substance: BACLOFEN
     Indication: PAIN
     Dosage: 1 TABLET, THREE TIMES DAILY AS NEEDED
     Route: 048
  3. DICLOFENAC NA [Concomitant]
     Active Substance: DICLOFENAC SODIUM
     Indication: ARTHRALGIA
     Dosage: 4 GRAMS TO AFFECTED AREA FOUR TIMES A DAY AS NEEDED
     Route: 061
  4. NIFEDIPINE. [Concomitant]
     Active Substance: NIFEDIPINE
     Indication: HYPERTENSION
     Dosage: 1 TABLET, ONCE DAILY
     Route: 048
  5. PROVENTIL [Suspect]
     Active Substance: ALBUTEROL
     Indication: WHEEZING
  6. BUDESONIDE;FORMOTEROL [Concomitant]
     Active Substance: BUDESONIDE\FORMOTEROL
     Dosage: 2 PUFFS, TWICE DAILY
  7. OXYCODONE HYDROCHLORIDE. [Concomitant]
     Active Substance: OXYCODONE HYDROCHLORIDE
     Indication: PAIN
     Dosage: 1 TABLET, EVERY 6 HOURS AS NEEDED; FORMULATION: TABLET/CAPSULE IMMEDIATE RELEASE
     Route: 048
  8. TERBINAFINE HCL [Concomitant]
     Active Substance: TERBINAFINE HYDROCHLORIDE
     Dosage: THIN LAYER TO AFFECTED AREA, TWICE DAIL, ON HANDS FOR 3 WEEKS
     Route: 061
  9. DOCUSATE SODIUM. [Concomitant]
     Active Substance: DOCUSATE SODIUM
     Dosage: 1 CAPSULE, TWICE DAILY
     Route: 048
  10. ENOXAPARIN [Concomitant]
     Active Substance: ENOXAPARIN
     Dosage: 40 MG (0.4 ML) UNDER THE SKIN ONCE DAILY FOR 28 DAYS
     Route: 058
  11. PROVENTIL [Suspect]
     Active Substance: ALBUTEROL
     Indication: DYSPNOEA
     Dosage: INHALE 2 PUFFS WITH MOUTH, 4 TIMES DAILY AS NEEDED
     Route: 055
  12. ASPIRIN (E.C.) [Concomitant]
     Active Substance: ASPIRIN
     Dosage: 1 TABLET, ONCE DAILY
     Route: 048
  13. ATORVASTATIN CALCIUM. [Concomitant]
     Active Substance: ATORVASTATIN CALCIUM
     Dosage: 0.5 TABLET, AT BEDTIME
     Route: 048
  14. LIDOCAINE. [Concomitant]
     Active Substance: LIDOCAINE
     Indication: PAIN
     Dosage: 1 PATCH TO SKIN ONCE DAILY, FOR 12?24 HOURS
     Route: 003
  15. NICOTINE. [Concomitant]
     Active Substance: NICOTINE
     Dosage: 1 PATCH, ONCE DAILY
  16. SENNOSIDES. [Concomitant]
     Active Substance: SENNOSIDES
     Dosage: 1 TABLET, ONCE DAILY, WHILE TAKING NARCOTIC
     Route: 048
  17. ACETAMINOPHEN. [Concomitant]
     Active Substance: ACETAMINOPHEN
     Indication: PAIN
     Dosage: 2 TABLETS, TWICE DAILY AS NEEDED
     Route: 048

REACTIONS (14)
  - Pleural effusion [Unknown]
  - Leukocytosis [Unknown]
  - Pulmonary oedema [Unknown]
  - Monocytosis [Unknown]
  - Tachycardia [Unknown]
  - Emphysema [Unknown]
  - Pulmonary infarction [Unknown]
  - Incarcerated hernia [Recovered/Resolved]
  - Atelectasis [Unknown]
  - Lymphadenopathy mediastinal [Unknown]
  - Cancer pain [Recovering/Resolving]
  - Renal cyst [Unknown]
  - Pulmonary embolism [Unknown]
  - Acute kidney injury [Unknown]

NARRATIVE: CASE EVENT DATE: 202107
